FAERS Safety Report 8986736 (Version 1)
Quarter: 2012Q4

REPORT INFORMATION
  Report Type: 
  Country: US (occurrence: US)
  Receive Date: 20121227
  Receipt Date: 20121227
  Transmission Date: 20130627
  Serious: No
  Sender: FDA-Public Use
  Company Number: US-JNJFOC-20121210978

PATIENT
  Sex: Male
  Weight: 113.4 kg

DRUGS (6)
  1. FENTANYL [Suspect]
     Indication: BACK PAIN
     Route: 062
     Dates: start: 201211
  2. PANTOPRAZOLE [Concomitant]
     Route: 048
     Dates: start: 201206
  3. PRAVASTATIN [Concomitant]
     Route: 048
     Dates: start: 201206
  4. PERCOCET [Concomitant]
     Indication: PAIN
     Route: 048
     Dates: start: 2009
  5. AMLODIPINE BESYLATE [Concomitant]
     Indication: HYPERTENSION
     Route: 048
     Dates: start: 2002
  6. PAROXETINE [Concomitant]
     Route: 048
     Dates: start: 201206

REACTIONS (3)
  - Wrong technique in drug usage process [Not Recovered/Not Resolved]
  - Product quality issue [Unknown]
  - Product adhesion issue [None]
